FAERS Safety Report 4353544-5 (Version None)
Quarter: 2004Q2

REPORT INFORMATION
  Report Type: 
  Country: None (occurrence: None)
  Receive Date: 20040430
  Receipt Date: 20040419
  Transmission Date: 20050107
  Serious: Yes (Hospitalization)
  Sender: FDA-Public Use
  Company Number: 2004-BP-02993BP

PATIENT
  Sex: Male

DRUGS (1)
  1. MIRAPEX [Suspect]
     Dosage: NR, PO
     Route: 048

REACTIONS (2)
  - PULMONARY FIBROSIS [None]
  - SYSTEMIC LUPUS ERYTHEMATOSUS [None]
